FAERS Safety Report 5892532-4 (Version None)
Quarter: 2008Q3

REPORT INFORMATION
  Report Type: 
  Country: None (occurrence: None)
  Receive Date: 20080923
  Receipt Date: 20080923
  Transmission Date: 20090109
  Serious: Yes (Hospitalization)
  Sender: FDA-Public Use
  Company Number: None

PATIENT
  Age: 74 Year
  Sex: Female
  Weight: 65.8 kg

DRUGS (27)
  1. HEPARIN SODIUM [Suspect]
     Indication: DEEP VEIN THROMBOSIS
     Dosage: BASED ON APTT INFUSION
     Dates: start: 20080725, end: 20080727
  2. HEPARIN SODIUM [Suspect]
     Indication: DEEP VEIN THROMBOSIS
     Dosage: BASED ON APTT INFUSION
     Dates: start: 20080711
  3. HEPARIN SODIUM [Suspect]
     Indication: DEEP VEIN THROMBOSIS
     Dosage: BASED ON APTT INFUSION
     Dates: start: 20080716
  4. HEPARIN SODIUM [Suspect]
     Indication: DEEP VEIN THROMBOSIS
     Dosage: BASED ON APTT INFUSION
     Dates: start: 20080720
  5. HEPARIN SODIUM [Suspect]
     Indication: DEEP VEIN THROMBOSIS
     Dosage: BASED ON APTT INFUSION
     Dates: start: 20080722
  6. ACETAMINOPHEN [Concomitant]
  7. LORTAB [Concomitant]
  8. ALBUTEROL [Concomitant]
  9. AMITRIPTYLINE HCL [Concomitant]
  10. ASPIRIN [Concomitant]
  11. CEFAZOLIN [Concomitant]
  12. CEPHALEXIN [Concomitant]
  13. PLAVIS [Concomitant]
  14. VITAMIN B-12 [Concomitant]
  15. DOCUSAT [Concomitant]
  16. ENALAPRIL MALEATE [Concomitant]
  17. FAMOTIDINE [Concomitant]
  18. FENTANYL [Concomitant]
  19. FOLIC ACID [Concomitant]
  20. FUROSEMIDE [Concomitant]
  21. REGULAR INSULIN [Concomitant]
  22. LEVOFLOXACIN [Concomitant]
  23. METOPROLOL TARTRATE [Concomitant]
  24. MORPHINE [Concomitant]
  25. ZOSYN [Concomitant]
  26. SIMVASTATIN [Concomitant]
  27. VANCOMYCIN HYDROCHLORIDE [Concomitant]

REACTIONS (6)
  - ANTIBODY TEST POSITIVE [None]
  - AXILLARY VEIN THROMBOSIS [None]
  - HEPARIN-INDUCED THROMBOCYTOPENIA TEST [None]
  - PLATELET COUNT DECREASED [None]
  - SUBCLAVIAN VEIN THROMBOSIS [None]
  - THROMBOPHLEBITIS SUPERFICIAL [None]
